FAERS Safety Report 17921848 (Version 1)
Quarter: 2020Q2

REPORT INFORMATION
  Report Type: Spontaneous
  Country: CA (occurrence: CA)
  Receive Date: 20200622
  Receipt Date: 20200622
  Transmission Date: 20200714
  Serious: Yes (Hospitalization, Other)
  Sender: FDA-Public Use
  Company Number: CA-TEVA-2020-CA-1790596

PATIENT
  Age: 74 Year
  Sex: Female
  Weight: 97 kg

DRUGS (3)
  1. TEVA-FUROSEMIDE [Suspect]
     Active Substance: FUROSEMIDE
     Route: 048
  2. NOVO-FUROSEMIDE [Suspect]
     Active Substance: FUROSEMIDE
     Indication: HYPERTENSION
     Route: 048
  3. NOVO-FUROSEMIDE [Suspect]
     Active Substance: FUROSEMIDE
     Route: 048

REACTIONS (1)
  - Blood potassium decreased [Recovered/Resolved]
